FAERS Safety Report 21450410 (Version 2)
Quarter: 2022Q4

REPORT INFORMATION
  Report Type: Spontaneous
  Country: JP (occurrence: JP)
  Receive Date: 20221013
  Receipt Date: 20221021
  Transmission Date: 20230112
  Serious: Yes (Death, Hospitalization, Other)
  Sender: FDA-Public Use
  Company Number: JP-ASTELLAS-2022JP007090

PATIENT
  Age: 9 Decade
  Sex: Male

DRUGS (4)
  1. PADCEV [Suspect]
     Active Substance: ENFORTUMAB VEDOTIN-EJFV
     Indication: Transitional cell carcinoma
     Route: 041
     Dates: start: 20220512, end: 20220512
  2. PADCEV [Suspect]
     Active Substance: ENFORTUMAB VEDOTIN-EJFV
     Dosage: 0.675 MG/KG, ONCE WEEKLY
     Route: 041
     Dates: start: 20220623, end: 20220817
  3. PRIMPERAN [Concomitant]
     Active Substance: METOCLOPRAMIDE HYDROCHLORIDE
     Indication: Decreased appetite
     Dosage: UNK UNK, UNKNOWN FREQ.
     Route: 065
  4. NAUZELIN [Concomitant]
     Active Substance: DOMPERIDONE
     Indication: Decreased appetite
     Dosage: UNK UNK, UNKNOWN FREQ.
     Route: 065

REACTIONS (4)
  - Interstitial lung disease [Fatal]
  - Fatigue [Unknown]
  - Infusion related reaction [Recovered/Resolved]
  - Metastases to lung [Fatal]

NARRATIVE: CASE EVENT DATE: 20220512
